FAERS Safety Report 7828570-1 (Version None)
Quarter: 2011Q4

REPORT INFORMATION
  Report Type: 
  Country: None (occurrence: None)
  Receive Date: 20111020
  Receipt Date: 20111020
  Transmission Date: 20120403
  Serious: Yes (Other)
  Sender: FDA-Public Use
  Company Number: None

PATIENT
  Sex: Female
  Weight: 58.967 kg

DRUGS (2)
  1. NUVARING [Suspect]
     Indication: CONTRACEPTION
     Dates: start: 20110601, end: 20111001
  2. IBUPROFEN [Concomitant]

REACTIONS (2)
  - TRIGEMINAL NEURALGIA [None]
  - DYSMENORRHOEA [None]
